FAERS Safety Report 19267031 (Version 1)
Quarter: 2021Q2

REPORT INFORMATION
  Report Type: Report from Study
  Country: BE (occurrence: BE)
  Receive Date: 20210517
  Receipt Date: 20210517
  Transmission Date: 20210717
  Serious: Yes (Hospitalization, Other)
  Sender: FDA-Public Use
  Company Number: BE-PURDUE-USA-2021-0259179

PATIENT
  Age: 52 Year
  Sex: Female

DRUGS (30)
  1. DUROGESIC [Suspect]
     Active Substance: FENTANYL
     Dosage: 37.5 MCG/HR, Q3D [EVERY 3 DAYS]
     Route: 062
     Dates: start: 20200928, end: 20201008
  2. DUROGESIC [Suspect]
     Active Substance: FENTANYL
     Dosage: 25 MCG/HR, Q3D [EVERY 3 DAYS]
     Route: 062
     Dates: start: 202009, end: 20200927
  3. BUSCOPAN [Concomitant]
     Active Substance: BUTYLSCOPOLAMINE BROMIDE
     Dosage: UNK
     Dates: start: 20200921, end: 20201101
  4. LAXOBERON [Concomitant]
     Active Substance: SODIUM PICOSULFATE
     Indication: FAECALOMA
     Dosage: 12 DROP, DAILY
     Route: 048
     Dates: start: 20201013, end: 20201101
  5. FORLAX [Concomitant]
     Active Substance: POLYETHYLENE GLYCOL 4000
     Indication: CONSTIPATION
     Dosage: 1 BAG, TID
     Route: 065
     Dates: start: 20201120
  6. BEFACT                             /01525301/ [Concomitant]
     Dosage: UNK
     Dates: start: 20201019
  7. OXYNORM [Suspect]
     Active Substance: OXYCODONE HYDROCHLORIDE
     Dosage: 5 MG, PRN
     Route: 048
     Dates: start: 202003, end: 20200929
  8. CARBOPLATIN. [Suspect]
     Active Substance: CARBOPLATIN
     Dosage: 5 AUC, 1Q3W
     Route: 042
     Dates: start: 20200928, end: 20200928
  9. DUROGESIC [Suspect]
     Active Substance: FENTANYL
     Dosage: 75 MCG, Q3D
     Route: 062
     Dates: start: 20201014, end: 20201031
  10. DUROGESIC [Suspect]
     Active Substance: FENTANYL
     Dosage: 12.5 MCG/HR, Q3D [EVERY 3 DAYS]
     Route: 062
     Dates: start: 202003, end: 202009
  11. PANTOMED                           /01263204/ [Concomitant]
     Active Substance: PANTOPRAZOLE SODIUM
     Dosage: UNK
     Dates: start: 202003
  12. SPASMOMEN [Concomitant]
     Active Substance: OTILONIUM BROMIDE
     Dosage: UNK
     Dates: start: 20200921, end: 20200927
  13. LITICAN                            /00690801/ [Concomitant]
     Active Substance: ALIZAPRIDE
     Dosage: UNK
     Dates: start: 20201005
  14. LAXOBERON [Concomitant]
     Active Substance: SODIUM PICOSULFATE
     Indication: CONSTIPATION
  15. TISOTUMAB VEDOTIN. [Suspect]
     Active Substance: TISOTUMAB VEDOTIN
     Indication: CERVIX CARCINOMA
     Dosage: UNK
     Route: 065
     Dates: end: 20201130
  16. OXYNORM [Suspect]
     Active Substance: OXYCODONE HYDROCHLORIDE
     Indication: PRODUCT USED FOR UNKNOWN INDICATION
     Dosage: 10 MG, PRN
     Route: 048
     Dates: start: 202009
  17. CARBOPLATIN. [Suspect]
     Active Substance: CARBOPLATIN
     Indication: CERVIX CARCINOMA
     Dosage: 4 AUC, 1Q3W
     Route: 042
     Dates: start: 20201102, end: 20201102
  18. PARACETAMOL [Concomitant]
     Active Substance: ACETAMINOPHEN
     Dosage: 1 G, DAILY
     Route: 042
     Dates: start: 20201009, end: 20201009
  19. BUSCOPAN [Concomitant]
     Active Substance: BUTYLSCOPOLAMINE BROMIDE
     Dosage: 10 MG, PRN
     Route: 048
     Dates: start: 20201118
  20. VOLTAREN [Concomitant]
     Active Substance: DICLOFENAC SODIUM
     Dosage: UNK
     Dates: start: 20201013
  21. TISOTUMAB VEDOTIN. [Suspect]
     Active Substance: TISOTUMAB VEDOTIN
     Dosage: UNK
     Route: 065
     Dates: end: 20201116
  22. DUROGESIC [Suspect]
     Active Substance: FENTANYL
     Indication: ABDOMINAL PAIN LOWER
     Dosage: 50 MCG/HR, Q3D
     Route: 062
     Dates: start: 20201101
  23. DUROGESIC [Suspect]
     Active Substance: FENTANYL
     Dosage: 50 MCG/HR, Q3D [EVERY 3 DAYS]
     Route: 062
     Dates: start: 20201009, end: 20201013
  24. FORLAX [Concomitant]
     Active Substance: POLYETHYLENE GLYCOL 4000
     Indication: PROPHYLAXIS
     Dosage: UNK
     Dates: start: 20200923
  25. THEALOZ DUO [Concomitant]
     Active Substance: HYALURONATE SODIUM\TREHALOSE
     Dosage: UNK
     Dates: start: 20200928
  26. MOVICOL [Concomitant]
     Active Substance: POLYETHYLENE GLYCOL 3350\POTASSIUM CHLORIDE\SODIUM BICARBONATE\SODIUM CHLORIDE
     Dosage: UNK
     Dates: end: 20200922
  27. LAXOBERON [Concomitant]
     Active Substance: SODIUM PICOSULFATE
     Indication: PROPHYLAXIS
  28. TISOTUMAB VEDOTIN. [Suspect]
     Active Substance: TISOTUMAB VEDOTIN
     Dosage: 2 MG/KG, 1Q3W
     Route: 042
     Dates: start: 20200928, end: 20201102
  29. PARACETAMOL [Concomitant]
     Active Substance: ACETAMINOPHEN
     Dosage: UNK
     Dates: start: 202003
  30. FORLAX [Concomitant]
     Active Substance: POLYETHYLENE GLYCOL 4000
     Indication: FAECALOMA
     Dosage: 1 BAG, BID
     Route: 048
     Dates: start: 20201005

REACTIONS (2)
  - Faecaloma [Recovered/Resolved]
  - Faecaloma [Recovered/Resolved]

NARRATIVE: CASE EVENT DATE: 20201005
